FAERS Safety Report 23965321 (Version 1)
Quarter: 2024Q2

REPORT INFORMATION
  Report Type: Other
  Country: GB (occurrence: None)
  Receive Date: 20240612
  Receipt Date: 20240612
  Transmission Date: 20240716
  Serious: Yes (Death, Hospitalization, Other)
  Sender: FDA-Public Use
  Company Number: GB-ROCHE-3579699

PATIENT

DRUGS (6)
  1. BEVACIZUMAB [Suspect]
     Active Substance: BEVACIZUMAB
     Indication: Pleural mesothelioma
     Route: 065
  2. PEMBROLIZUMAB [Suspect]
     Active Substance: PEMBROLIZUMAB
     Indication: Pleural mesothelioma
     Route: 065
  3. NIVOLUMAB [Suspect]
     Active Substance: NIVOLUMAB
     Indication: Pleural mesothelioma
     Route: 065
  4. CISPLATIN [Suspect]
     Active Substance: CISPLATIN
     Indication: Pleural mesothelioma
     Route: 065
  5. CARBOPLATIN [Suspect]
     Active Substance: CARBOPLATIN
     Indication: Pleural mesothelioma
     Route: 065
  6. PEMETREXED [Suspect]
     Active Substance: PEMETREXED
     Indication: Pleural mesothelioma
     Route: 065

REACTIONS (51)
  - Pneumonia [Fatal]
  - Acute respiratory distress syndrome [Fatal]
  - Myocardial ischaemia [Fatal]
  - Sepsis [Fatal]
  - Cardiac failure [Fatal]
  - Lower respiratory tract infection [Fatal]
  - Thoracic haemorrhage [Fatal]
  - COVID-19 [Fatal]
  - Anaemia [Unknown]
  - Myelosuppression [Unknown]
  - Neutropenia [Unknown]
  - Thrombocytopenia [Unknown]
  - Angina pectoris [Unknown]
  - Atrial fibrillation [Unknown]
  - Myocardial infarction [Unknown]
  - Pericardial effusion [Unknown]
  - Pericarditis [Unknown]
  - Pulmonary oedema [Unknown]
  - Supraventricular tachycardia [Unknown]
  - Tachycardia [Unknown]
  - Ventricular fibrillation [Unknown]
  - Abdominal distension [Unknown]
  - Abdominal hernia [Unknown]
  - Abdominal pain [Unknown]
  - Acute abdomen [Unknown]
  - Ascites [Unknown]
  - Colitis [Unknown]
  - Constipation [Unknown]
  - Diarrhoea [Unknown]
  - Dysphagia [Unknown]
  - Intestinal perforation [Unknown]
  - Nausea [Unknown]
  - Oesophageal obstruction [Unknown]
  - Oesophageal perforation [Unknown]
  - Pancreatitis [Unknown]
  - Peptic ulcer [Unknown]
  - Gastrointestinal haemorrhage [Unknown]
  - Small intestinal obstruction [Unknown]
  - Vomiting [Unknown]
  - Chest pain [Unknown]
  - Fatigue [Unknown]
  - Multiple organ dysfunction syndrome [Unknown]
  - Neoplasm malignant [Unknown]
  - Oedema [Unknown]
  - Oedema peripheral [Unknown]
  - Pain [Unknown]
  - Perforation [Unknown]
  - Peripheral swelling [Unknown]
  - Pyrexia [Unknown]
  - Biliary sepsis [Unknown]
  - COVID-19 pneumonia [Unknown]
